FAERS Safety Report 4307481-2 (Version None)
Quarter: 2004Q1

REPORT INFORMATION
  Report Type: 
  Country: None (occurrence: None)
  Receive Date: 20040226
  Receipt Date: 20040218
  Transmission Date: 20041129
  Serious: Yes (Other)
  Sender: FDA-Public Use
  Company Number: NO-JNJFOC-20040203919

PATIENT
  Age: 26 Year
  Sex: Female

DRUGS (4)
  1. REMICADE [Suspect]
     Indication: ANKYLOSING SPONDYLITIS
     Dosage: 300 MG, 1 IN 3 WEEK, INTRAVENOUS
     Route: 042
     Dates: start: 20031128, end: 20031215
  2. SEREVENT [Concomitant]
  3. MICROGYNON (EUGYNON) [Concomitant]
  4. VIOXX [Concomitant]

REACTIONS (5)
  - CHEST DISCOMFORT [None]
  - DIARRHOEA [None]
  - MUSCULOSKELETAL STIFFNESS [None]
  - NAUSEA [None]
  - VERTIGO [None]
